FAERS Safety Report 13395975 (Version 1)
Quarter: 2017Q2

REPORT INFORMATION
  Report Type: Spontaneous
  Country: FR (occurrence: FR)
  Receive Date: 20170403
  Receipt Date: 20170403
  Transmission Date: 20170830
  Serious: Yes (Disabling)
  Sender: FDA-Public Use
  Company Number: FR-GLAXOSMITHKLINE-FR2017GSK045287

PATIENT
  Age: 64 Year
  Sex: Male

DRUGS (2)
  1. NICOPATCH [Suspect]
     Active Substance: NICOTINE
     Indication: PRODUCT USED FOR UNKNOWN INDICATION
     Dosage: 14 MG, QD
     Route: 062
     Dates: start: 20170228
  2. NICOPATCH [Suspect]
     Active Substance: NICOTINE
     Dosage: 21 MG, QD
     Route: 062
     Dates: start: 20170228

REACTIONS (4)
  - Application site eczema [Recovered/Resolved with Sequelae]
  - Application site pruritus [Recovered/Resolved with Sequelae]
  - Overdose [Unknown]
  - Off label use [Unknown]

NARRATIVE: CASE EVENT DATE: 20170228
